FAERS Safety Report 12501191 (Version 2)
Quarter: 2016Q3

REPORT INFORMATION
  Report Type: Spontaneous
  Country: US (occurrence: US)
  Receive Date: 20160627
  Receipt Date: 20160701
  Transmission Date: 20161109
  Serious: Yes (Other)
  Sender: FDA-Public Use
  Company Number: US-TEVA-669888USA

PATIENT
  Age: 19 Year
  Sex: Female

DRUGS (1)
  1. ZECUITY [Suspect]
     Active Substance: SUMATRIPTAN SUCCINATE
     Indication: MIGRAINE
     Route: 062
     Dates: start: 20160611, end: 20160611

REACTIONS (14)
  - Application site scab [Not Recovered/Not Resolved]
  - Application site inflammation [Recovering/Resolving]
  - Application site urticaria [Not Recovered/Not Resolved]
  - Application site pain [Recovered/Resolved]
  - Skin disorder [Not Recovered/Not Resolved]
  - Product adhesion issue [Recovered/Resolved]
  - Application site burn [Not Recovered/Not Resolved]
  - Application site scar [Not Recovered/Not Resolved]
  - Application site pain [Not Recovered/Not Resolved]
  - Product physical issue [Unknown]
  - Application site warmth [Recovered/Resolved]
  - Application site erythema [Recovering/Resolving]
  - Product leakage [Unknown]
  - Wrong technique in product usage process [Unknown]

NARRATIVE: CASE EVENT DATE: 20160611
